FAERS Safety Report 6032339-0 (Version None)
Quarter: 2009Q1

REPORT INFORMATION
  Report Type: 
  Country: None (occurrence: None)
  Receive Date: 20090109
  Receipt Date: 20090106
  Transmission Date: 20090719
  Serious: Yes (Life-Threatening)
  Sender: FDA-Public Use
  Company Number: JP-JNJFOC-20090100702

PATIENT
  Age: 73 Year
  Sex: Male

DRUGS (7)
  1. ITRIZOLE [Suspect]
     Route: 041
  2. ITRIZOLE [Suspect]
     Indication: BRONCHOPULMONARY ASPERGILLOSIS
     Route: 041
  3. ITRIZOLE [Suspect]
     Route: 048
     Dates: start: 20081219
  4. MAXIPIME [Concomitant]
     Route: 042
  5. PASIL [Concomitant]
     Route: 042
     Dates: start: 20081217
  6. FINIBAX [Concomitant]
     Route: 042
     Dates: start: 20081218
  7. MINOPEN [Concomitant]
     Route: 042
     Dates: start: 20081218

REACTIONS (1)
  - INTERSTITIAL LUNG DISEASE [None]
